FAERS Safety Report 9759608 (Version 1)
Quarter: 2013Q4

REPORT INFORMATION
  Report Type: Spontaneous
  Country: US (occurrence: US)
  Receive Date: 20131216
  Receipt Date: 20131216
  Transmission Date: 20140711
  Serious: No
  Sender: FDA-Public Use
  Company Number: US-GILEAD-2010-0028286

PATIENT
  Sex: Female
  Weight: 119.75 kg

DRUGS (8)
  1. LETAIRIS [Suspect]
     Indication: PULMONARY ARTERIAL HYPERTENSION
     Route: 048
     Dates: start: 20100115
  2. PREDNISONE [Concomitant]
  3. RANTIDINE [Concomitant]
  4. DIOVAN [Concomitant]
  5. METFORMIN [Concomitant]
  6. CALCIUM [Concomitant]
  7. KLOR-CON [Concomitant]
  8. VITAMIN D [Concomitant]

REACTIONS (1)
  - Vulvovaginal discomfort [Unknown]
